FAERS Safety Report 5652287-5 (Version None)
Quarter: 2008Q1

REPORT INFORMATION
  Report Type: 
  Country: None (occurrence: None)
  Receive Date: 20080305
  Receipt Date: 20080227
  Transmission Date: 20080703
  Serious: Yes (Other)
  Sender: FDA-Public Use
  Company Number: US-BOEHRINGER INGELHEIM GMBH, GERMANY-2008-BP-03162PF

PATIENT

DRUGS (3)
  1. SPIRIVA [Suspect]
     Route: 055
  2. CHANTIX [Suspect]
  3. ALBUTEROL [Concomitant]

REACTIONS (10)
  - BRONCHITIS [None]
  - CHRONIC OBSTRUCTIVE PULMONARY DISEASE [None]
  - CLUBBING [None]
  - CONSTIPATION [None]
  - DYSPNOEA [None]
  - EMPHYSEMA [None]
  - GRANULOMA [None]
  - HYPOXIA [None]
  - SMOKER [None]
  - WHEEZING [None]
